FAERS Safety Report 9639683 (Version 1)
Quarter: 2013Q4

REPORT INFORMATION
  Report Type: Spontaneous
  Country: FR (occurrence: FR)
  Receive Date: 20131023
  Receipt Date: 20131023
  Transmission Date: 20140711
  Serious: Yes (Hospitalization)
  Sender: FDA-Public Use
  Company Number: FR-ROCHE-1291983

PATIENT
  Age: 71 Year
  Sex: Female

DRUGS (5)
  1. AVASTIN [Suspect]
     Indication: PRODUCT USED FOR UNKNOWN INDICATION
     Route: 042
     Dates: start: 201206, end: 20130709
  2. AVASTIN [Suspect]
     Route: 042
     Dates: start: 20111219, end: 201203
  3. AVASTIN [Suspect]
     Route: 042
     Dates: start: 200910, end: 200912
  4. ALDACTONE (FRANCE) [Concomitant]
  5. LASILIX [Concomitant]

REACTIONS (1)
  - Pancreatitis acute [Unknown]
